FAERS Safety Report 20378164 (Version 2)
Quarter: 2022Q1

REPORT INFORMATION
  Report Type: Spontaneous
  Country: JP (occurrence: JP)
  Receive Date: 20220126
  Receipt Date: 20220208
  Transmission Date: 20220424
  Serious: No
  Sender: FDA-Public Use
  Company Number: JP-GLAXOSMITHKLINE-JP2022JPN009814

PATIENT
  Age: 48 Year

DRUGS (2)
  1. SOTROVIMAB [Suspect]
     Active Substance: SOTROVIMAB
     Dosage: 500 MG/100 ML/60 MIN
     Dates: start: 20220118, end: 20220118
  2. SALAZOSULFAPYRIDINE ENTERIC COATED TABLET [Concomitant]
     Indication: Rheumatoid arthritis
     Dosage: 500 MG, BID

REACTIONS (1)
  - Rash [Recovering/Resolving]

NARRATIVE: CASE EVENT DATE: 20220118
